FAERS Safety Report 5755148-6 (Version None)
Quarter: 2008Q2

REPORT INFORMATION
  Report Type: 
  Country: None (occurrence: None)
  Receive Date: 20080602
  Receipt Date: 20080527
  Transmission Date: 20081010
  Serious: Yes (Other)
  Sender: FDA-Public Use
  Company Number: US-JNJFOC-20061003402

PATIENT
  Sex: Female

DRUGS (3)
  1. RISPERDAL [Suspect]
     Indication: MAJOR DEPRESSION
  2. HALDOL [Concomitant]
  3. PROZAC [Concomitant]

REACTIONS (1)
  - DIABETES MELLITUS [None]
